FAERS Safety Report 12820438 (Version 1)
Quarter: 2016Q4

REPORT INFORMATION
  Report Type: Spontaneous
  Country: US (occurrence: US)
  Receive Date: 20161006
  Receipt Date: 20161006
  Transmission Date: 20170207
  Serious: Yes (Other)
  Sender: FDA-Public Use
  Company Number: US-AMGEN-USASP2016134789

PATIENT
  Age: 84 Year
  Sex: Female

DRUGS (3)
  1. SENSIPAR [Suspect]
     Active Substance: CINACALCET HYDROCHLORIDE
     Indication: RENAL DISORDER
     Dosage: 30 MG, QD
     Route: 065
  2. SENSIPAR [Suspect]
     Active Substance: CINACALCET HYDROCHLORIDE
     Dosage: 60 MG, UNK
     Route: 065
  3. REPATHA [Suspect]
     Active Substance: EVOLOCUMAB
     Indication: PRODUCT USED FOR UNKNOWN INDICATION
     Dosage: 140 MG, Q2WK
     Route: 065
     Dates: start: 2016

REACTIONS (7)
  - Discomfort [Unknown]
  - Poor peripheral circulation [Unknown]
  - Joint range of motion decreased [Unknown]
  - Fall [Unknown]
  - Pain in extremity [Not Recovered/Not Resolved]
  - Coronary arterial stent insertion [Unknown]
  - Stent placement [Unknown]

NARRATIVE: CASE EVENT DATE: 2016
